FAERS Safety Report 6542423-0 (Version None)
Quarter: 2010Q1

REPORT INFORMATION
  Report Type: 
  Country: None (occurrence: None)
  Receive Date: 20100114
  Receipt Date: 20100114
  Transmission Date: 20100710
  Serious: Yes (Other)
  Sender: FDA-Public Use
  Company Number: None

PATIENT
  Age: 33 Year
  Sex: Male
  Weight: 78.0187 kg

DRUGS (1)
  1. LEVAQUIN [Suspect]
     Indication: PROSTATITIS
     Dosage: 14 1 CAP EVERY 24 HRS PO
     Route: 048
     Dates: start: 20091219, end: 20100101

REACTIONS (8)
  - BURNING SENSATION [None]
  - DIZZINESS [None]
  - GROIN PAIN [None]
  - HEADACHE [None]
  - MUSCLE TWITCHING [None]
  - MYALGIA [None]
  - PAIN IN EXTREMITY [None]
  - VISION BLURRED [None]
